FAERS Safety Report 9326143 (Version 2)
Quarter: 2013Q3

REPORT INFORMATION
  Report Type: Spontaneous
  Country: US (occurrence: US)
  Receive Date: 20130604
  Receipt Date: 20130725
  Transmission Date: 20140515
  Serious: No
  Sender: FDA-Public Use
  Company Number: US-009507513-1305USA017575

PATIENT
  Age: 27 Year
  Sex: Female
  Weight: 90.7 kg

DRUGS (1)
  1. NUVARING [Suspect]
     Indication: CONTRACEPTION
     Dosage: UNK
     Route: 067
     Dates: start: 20130503, end: 20130619

REACTIONS (4)
  - Vulvovaginal swelling [Unknown]
  - Device expulsion [Not Recovered/Not Resolved]
  - Device expulsion [Unknown]
  - Vulvovaginal pain [Unknown]
